FAERS Safety Report 4360005-6 (Version None)
Quarter: 2004Q2

REPORT INFORMATION
  Report Type: 
  Country: None (occurrence: None)
  Receive Date: 20040518
  Receipt Date: 20040518
  Transmission Date: 20050107
  Serious: Yes (Death)
  Sender: FDA-Public Use
  Company Number: None

PATIENT
  Age: 46 Year
  Sex: Male
  Weight: 95.2554 kg

DRUGS (5)
  1. AVASTIN [Suspect]
     Indication: COLON CANCER METASTATIC
     Dosage: 400 MG Q 2 WEEKS INTRAVENOUS
     Route: 042
     Dates: start: 20040326, end: 20040326
  2. CAMPTOSAR [Concomitant]
  3. IBUPROFEN [Concomitant]
  4. HYDROCODONE [Concomitant]
  5. ATROPINE [Concomitant]

REACTIONS (5)
  - ACUTE RESPIRATORY DISTRESS SYNDROME [None]
  - HEPATIC FAILURE [None]
  - HEPATORENAL SYNDROME [None]
  - HYPERBILIRUBINAEMIA [None]
  - SUDDEN DEATH [None]
